FAERS Safety Report 26084059 (Version 1)
Quarter: 2025Q4

REPORT INFORMATION
  Report Type: Spontaneous
  Country: US (occurrence: US)
  Receive Date: 20251124
  Receipt Date: 20251124
  Transmission Date: 20260118
  Serious: Yes (Other)
  Sender: BIOMARIN
  Company Number: US-BIOMARINAP-US-2025-170171

PATIENT
  Age: 14 Year
  Sex: Male

DRUGS (2)
  1. PALYNZIQ [Suspect]
     Active Substance: PEGVALIASE-PQPZ
     Indication: Phenylketonuria
     Dosage: 20, UNK, QD
  2. PALYNZIQ [Suspect]
     Active Substance: PEGVALIASE-PQPZ
     Dosage: UNK

REACTIONS (4)
  - Hypersensitivity [Unknown]
  - Unresponsive to stimuli [Unknown]
  - Glassy eyes [Unknown]
  - Off label use [Unknown]

NARRATIVE: CASE EVENT DATE: 20251119
